FAERS Safety Report 8845131 (Version 2)
Quarter: 2012Q4

REPORT INFORMATION
  Report Type: 
  Country: US (occurrence: US)
  Receive Date: 20121017
  Receipt Date: 20121024
  Transmission Date: 20130627
  Serious: Yes (Disabling, Other)
  Sender: FDA-Public Use
  Company Number: US-PFIZER INC-2012212752

PATIENT
  Age: 40 Year
  Sex: Female

DRUGS (15)
  1. XANAX [Suspect]
     Indication: ANXIETY
     Dosage: 1 mg, 4x/day
  2. HEPARIN SODIUM [Suspect]
     Dosage: 10 ml, 3x/day
  3. LIDOCAINE [Suspect]
     Dosage: 10 ml, 3x/day
  4. FLEXERIL [Suspect]
     Indication: BLADDER DISORDER
     Dosage: 10 mg, 3x/day
  5. ZOFRAN [Suspect]
     Indication: NAUSEA
     Dosage: 4 mg, 3x/day
  6. VALIUM [Suspect]
     Indication: PAIN
     Dosage: 10 mg, 3x/day
     Route: 067
  7. PHENOBARBITAL [Suspect]
     Indication: CONVULSION
     Dosage: 64.8 (1 at bedtime)
  8. BACTRIM DS [Suspect]
     Indication: INFECTION
     Dosage: 1 pill twice a day
  9. MACRODANTIN [Suspect]
     Indication: INFECTION
     Dosage: 50mg (2 at bedtime)
  10. URELLE [Suspect]
     Indication: BURNING SENSATION
     Dosage: 2 tablets 4 times a day
  11. DEPAKOTE [Suspect]
     Indication: CONVULSION
     Dosage: 500mg (2 at bedtime)
  12. VIVELLE [Suspect]
     Indication: HORMONE REPLACEMENT THERAPY
     Dosage: 1 patch biweekly
  13. LIDOCAINE [Suspect]
     Indication: HYPOAESTHESIA
     Dosage: 4 times a day
     Route: 067
  14. LUNESTA [Suspect]
     Indication: INSOMNIA
     Dosage: 3mg (1 at bedtime)
  15. NORCO [Suspect]
     Indication: PAIN
     Dosage: 1 pill 4 times a day

REACTIONS (13)
  - Cystitis interstitial [Unknown]
  - Infection [Unknown]
  - Staphylococcal infection [Recovered/Resolved]
  - Pyrexia [Unknown]
  - Vision blurred [Unknown]
  - Convulsion [Unknown]
  - Systemic candida [Unknown]
  - Tremor [Unknown]
  - Amnesia [Unknown]
  - LE cells present [Unknown]
  - Influenza like illness [Unknown]
  - Gastrointestinal disorder [Unknown]
  - Tongue disorder [Unknown]
